FAERS Safety Report 18883524 (Version 2)
Quarter: 2021Q1

REPORT INFORMATION
  Report Type: Spontaneous
  Country: CA (occurrence: CA)
  Receive Date: 20210212
  Receipt Date: 20210224
  Transmission Date: 20210420
  Serious: Yes (Other)
  Sender: FDA-Public Use
  Company Number: NVSC2021CA029906

PATIENT
  Sex: Female

DRUGS (1)
  1. CIPROFLOXACIN. [Suspect]
     Active Substance: CIPROFLOXACIN
     Indication: INFECTION
     Dosage: UNK
     Route: 065

REACTIONS (5)
  - Malaise [Unknown]
  - Illness [Unknown]
  - Back pain [Unknown]
  - Ligament disorder [Unknown]
  - Tendon rupture [Unknown]
